FAERS Safety Report 17442300 (Version 1)
Quarter: 2020Q1

REPORT INFORMATION
  Report Type: Spontaneous
  Country: US (occurrence: US)
  Receive Date: 20200220
  Receipt Date: 20200220
  Transmission Date: 20200409
  Serious: Yes (Hospitalization, Other)
  Sender: FDA-Public Use
  Company Number: US-PURDUE PHARMA-USA-2020-0149990

PATIENT
  Sex: Male

DRUGS (5)
  1. BUTRANS [Suspect]
     Active Substance: BUPRENORPHINE
     Indication: HYPERAESTHESIA
     Dosage: 10 MCG/HR, WEEKLY
     Route: 062
  2. BUTRANS [Suspect]
     Active Substance: BUPRENORPHINE
     Dosage: 7.5 MCG/HR, WEEKLY
     Route: 062
  3. PERCOCET                           /00446701/ [Suspect]
     Active Substance: ACETAMINOPHEN\OXYCODONE HYDROCHLORIDE\OXYCODONE TEREPHTHALATE
     Indication: PAIN
     Dosage: 10 MG, UNK
     Route: 065
     Dates: start: 2010
  4. BUTRANS [Suspect]
     Active Substance: BUPRENORPHINE
     Indication: LYME DISEASE
     Dosage: 15 MCG/HR, WEEKLY
     Route: 062
  5. BUTRANS [Suspect]
     Active Substance: BUPRENORPHINE
     Dosage: 20 MCG/HR, WEEKLY
     Route: 062

REACTIONS (9)
  - Drug ineffective [Unknown]
  - Cardiac disorder [Unknown]
  - Blood pressure increased [Unknown]
  - Feeling abnormal [Unknown]
  - Drug hypersensitivity [Unknown]
  - Pruritus [Unknown]
  - Malaise [Unknown]
  - Product adhesion issue [Unknown]
  - Drug withdrawal syndrome [Unknown]
